FAERS Safety Report 23507144 (Version 3)
Quarter: 2024Q1

REPORT INFORMATION
  Report Type: Spontaneous
  Country: US (occurrence: US)
  Receive Date: 20240209
  Receipt Date: 20240321
  Transmission Date: 20240410
  Serious: Yes (Hospitalization, Other)
  Sender: FDA-Public Use
  Company Number: US-PFIZER INC-202400035554

PATIENT
  Age: 20 Year
  Sex: Female
  Weight: 58.957 kg

DRUGS (1)
  1. DIFLUCAN [Suspect]
     Active Substance: FLUCONAZOLE
     Indication: Oral candidiasis
     Dosage: (100 MG SEVEN DAYS ONCE A DAY)
     Dates: start: 20210915, end: 20210918

REACTIONS (21)
  - Near death experience [Unknown]
  - Deafness neurosensory [Not Recovered/Not Resolved]
  - Vomiting [Not Recovered/Not Resolved]
  - Malaise [Not Recovered/Not Resolved]
  - Gait disturbance [Recovered/Resolved]
  - Hypoacusis [Unknown]
  - Insomnia [Not Recovered/Not Resolved]
  - Syncope [Unknown]
  - Central auditory processing disorder [Unknown]
  - Confusional state [Not Recovered/Not Resolved]
  - Balance disorder [Unknown]
  - Dizziness [Unknown]
  - Decreased appetite [Unknown]
  - Abdominal pain upper [Unknown]
  - Blood pressure decreased [Unknown]
  - Inner ear disorder [Unknown]
  - Depression [Unknown]
  - Anxiety [Unknown]
  - Heart rate decreased [Unknown]
  - Asthenia [Unknown]
  - Tinnitus [Not Recovered/Not Resolved]

NARRATIVE: CASE EVENT DATE: 20211018
